FAERS Safety Report 4906050-0 (Version None)
Quarter: 2006Q1

REPORT INFORMATION
  Report Type: 
  Country: None (occurrence: None)
  Receive Date: 20060209
  Receipt Date: 20060110
  Transmission Date: 20060701
  Serious: Yes (Hospitalization)
  Sender: FDA-Public Use
  Company Number: 2006AC00079

PATIENT
  Age: 21383 Day
  Sex: Male

DRUGS (4)
  1. ZD2171 [Suspect]
     Indication: NEOPLASM MALIGNANT
     Route: 048
     Dates: start: 20051018
  2. ZD2171 [Suspect]
     Indication: COLORECTAL CANCER
     Route: 048
     Dates: start: 20051018
  3. IRESSA [Suspect]
     Indication: NEOPLASM MALIGNANT
     Route: 048
     Dates: start: 20051018
  4. IRESSA [Suspect]
     Indication: COLORECTAL CANCER
     Route: 048
     Dates: start: 20051018

REACTIONS (3)
  - FATIGUE [None]
  - NAUSEA [None]
  - VOMITING [None]
